FAERS Safety Report 4317655-2 (Version None)
Quarter: 2004Q1

REPORT INFORMATION
  Report Type: 
  Country: None (occurrence: None)
  Receive Date: 20040315
  Receipt Date: 20040302
  Transmission Date: 20041129
  Serious: Yes (Hospitalization)
  Sender: FDA-Public Use
  Company Number: FR-GLAXOSMITHKLINE-B0325692A

PATIENT
  Age: 76 Year
  Sex: Female
  Weight: 57 kg

DRUGS (5)
  1. DEROXAT [Suspect]
     Route: 048
     Dates: start: 20030701
  2. CAPTOPRIL AND HYDROCHLOROTHIAZIDE [Suspect]
     Dosage: 1UNIT PER DAY
     Route: 048
  3. ASPIRIN [Concomitant]
     Dosage: 75MG PER DAY
     Route: 048
  4. ELISOR [Concomitant]
     Route: 048
  5. CARDIOCOR [Concomitant]
     Dosage: 1.25MG PER DAY
     Route: 048

REACTIONS (6)
  - BALANCE DISORDER [None]
  - DRUG INTERACTION [None]
  - HEADACHE [None]
  - HYPOKALAEMIA [None]
  - HYPONATRAEMIA [None]
  - NAUSEA [None]
